FAERS Safety Report 6355754-4 (Version None)
Quarter: 2009Q3

REPORT INFORMATION
  Report Type: 
  Country: None (occurrence: None)
  Receive Date: 20090914
  Receipt Date: 20090914
  Transmission Date: 20100115
  Serious: Yes (Life-Threatening, Hospitalization)
  Sender: FDA-Public Use
  Company Number: None

PATIENT
  Age: 39 Year
  Sex: Female
  Weight: 1 kg

DRUGS (1)
  1. T.R.U.E. TEST [Suspect]
     Indication: HYPERSENSITIVITY
     Dosage: 3 PATCH TEST PANELS 1 TIME CUTANEOUS
     Route: 003
     Dates: start: 20090901, end: 20090902

REACTIONS (2)
  - ANAPHYLACTIC REACTION [None]
  - CARDIAC ARREST [None]
